FAERS Safety Report 7879507-0 (Version None)
Quarter: 2011Q4

REPORT INFORMATION
  Report Type: 
  Country: None (occurrence: None)
  Receive Date: 20111101
  Receipt Date: 20110120
  Transmission Date: 20120403
  Serious: No
  Sender: FDA-Public Use
  Company Number: US-ABBOTT-11P-163-0700360-00

PATIENT
  Sex: Female
  Weight: 54.48 kg

DRUGS (1)
  1. BIAXIN [Suspect]
     Indication: INFECTION
     Route: 048
     Dates: start: 20030101, end: 20030101

REACTIONS (1)
  - NAUSEA [None]
